FAERS Safety Report 5069515-X (Version None)
Quarter: 2006Q3

REPORT INFORMATION
  Report Type: 
  Country: None (occurrence: None)
  Receive Date: 20060803
  Receipt Date: 20060725
  Transmission Date: 20061208
  Serious: Yes (Death)
  Sender: FDA-Public Use
  Company Number: GB-ROCHE-457566

PATIENT
  Age: 75 Year

DRUGS (6)
  1. CAPECITABINE [Suspect]
     Route: 048
     Dates: start: 20060522, end: 20060604
  2. ALENDRONIC ACID [Concomitant]
     Indication: OSTEOPOROSIS
     Route: 048
  3. DOXAZOSIN [Concomitant]
     Route: 048
  4. LOSARTAN POSTASSIUM [Concomitant]
     Indication: HYPERTENSION
     Route: 048
  5. SIMVASTATIN [Concomitant]
     Route: 048
  6. URSODEOXYCHOLIC ACID [Concomitant]
     Route: 048

REACTIONS (2)
  - MUCOSAL INFLAMMATION [None]
  - PULMONARY OEDEMA [None]
